FAERS Safety Report 7499233-X (Version None)
Quarter: 2011Q2

REPORT INFORMATION
  Report Type: 
  Country: None (occurrence: None)
  Receive Date: 20110524
  Receipt Date: 20110511
  Transmission Date: 20111010
  Serious: Yes (Death, Hospitalization)
  Sender: FDA-Public Use
  Company Number: GB-PFIZER INC-2011070340

PATIENT
  Sex: Female

DRUGS (27)
  1. PIPERACILLIN [Concomitant]
     Dosage: 4.5 G, UNK
     Dates: start: 20110126, end: 20110218
  2. THIAMINE [Concomitant]
     Dosage: 100 MG, UNK
     Dates: start: 20110126, end: 20110218
  3. CYCLIZINE [Concomitant]
     Dosage: 50 MG, UNK
     Route: 030
     Dates: start: 20110218, end: 20110224
  4. HYDROXYCARBAMIDE [Concomitant]
     Dosage: 2000 MG, UNK
     Route: 048
     Dates: start: 20110218, end: 20110224
  5. SANDO K [Concomitant]
     Dosage: 2 DF, UNK
     Dates: start: 20110128, end: 20110129
  6. GEMTUZUMAB OZOGAMICIN [Suspect]
     Dosage: 3 MG, UNK
     Dates: end: 20110130
  7. CYTARABINE [Suspect]
     Dosage: UNK
     Dates: end: 20110130
  8. DAUNORUBICIN HCL [Suspect]
     Dosage: UNK
     Dates: end: 20110130
  9. OMEPRAZOLE [Concomitant]
     Dosage: 40 MG, UNK
     Dates: start: 20110125, end: 20110218
  10. PREDNISOLONE SODIUM PHOSPHATE [Concomitant]
     Dosage: UNK
     Dates: start: 20110126, end: 20110218
  11. CYCLIZINE [Concomitant]
     Dosage: 50 MG, UNK
     Route: 048
     Dates: start: 20110218, end: 20110224
  12. HYOSCINE HYDROBROMIDE [Concomitant]
     Dosage: 400 UG, UNK
     Dates: start: 20110218, end: 20110224
  13. ETOPOSIDE [Suspect]
     Dosage: UNK
     Dates: end: 20110130
  14. GENTAMYCIN SULFATE [Concomitant]
     Dosage: 300 MG, UNK
     Dates: start: 20110127, end: 20110127
  15. AMILORIDE [Concomitant]
     Dosage: 10 MG, UNK
     Dates: start: 20110126, end: 20110218
  16. ONDANSETRON [Concomitant]
     Dosage: 8 MG, UNK
     Dates: start: 20110126, end: 20110224
  17. FLUDARABINE PHOSPHATE [Suspect]
     Dosage: UNK
     Dates: end: 20110130
  18. ACICLOVIR [Concomitant]
     Dosage: 400 MG, UNK
     Dates: start: 20110126, end: 20110218
  19. MORPHINE [Concomitant]
     Dosage: 5 MG, UNK
     Dates: start: 20110218, end: 20110224
  20. AMBISOME [Concomitant]
     Dosage: 180 MG, UNK
     Dates: start: 20110126, end: 20110218
  21. MIDAZOLAM [Concomitant]
     Dosage: 2.5 MG, UNK
     Dates: start: 20110218, end: 20110224
  22. ITRACONAZOLE [Concomitant]
     Dosage: 20 ML, UNK
     Dates: start: 20110126, end: 20110127
  23. PHOSPHATE-SANDOZ [Concomitant]
     Dosage: 2 DF, UNK
     Dates: start: 20110218, end: 20110224
  24. IDARUBICIN HCL [Suspect]
     Dosage: UNK
     Dates: end: 20110130
  25. VITAMIN B [Concomitant]
     Dosage: 1 DF, UNK
     Dates: start: 20110126, end: 20110218
  26. ADCAL-D3 [Concomitant]
     Dosage: 1 DF, UNK
     Dates: start: 20110126, end: 20110218
  27. PARACETAMOL [Concomitant]
     Dosage: 1 G, UNK
     Dates: start: 20110218, end: 20110224

REACTIONS (3)
  - NEUTROPENIC SEPSIS [None]
  - ACUTE MYELOID LEUKAEMIA [None]
  - DISEASE PROGRESSION [None]
